FAERS Safety Report 8371194-0 (Version None)
Quarter: 2012Q2

REPORT INFORMATION
  Report Type: 
  Country: None (occurrence: None)
  Receive Date: 20120518
  Receipt Date: 20120512
  Transmission Date: 20120825
  Serious: Yes (Other)
  Sender: FDA-Public Use
  Company Number: PHHY2012MY041762

PATIENT
  Age: 58 Year
  Sex: Female

DRUGS (8)
  1. AZATHIOPRINE [Suspect]
     Indication: COLITIS ULCERATIVE
     Dosage: 100 MG, QD
  2. METHYLPREDNISOLONE [Suspect]
     Dosage: 500 MG, UNK
     Route: 042
  3. PREDNISOLONE [Suspect]
     Indication: COLITIS ULCERATIVE
     Dosage: 10 MG, QD
     Route: 048
  4. AZATHIOPRINE [Suspect]
     Dosage: 100 MG, QD
  5. AZATHIOPRINE [Suspect]
     Dosage: 150 MG, QD
  6. SULFASALAZINE [Suspect]
     Dosage: 1 G, BID
  7. METHOTREXATE [Suspect]
     Dosage: 10 MG, UNK
     Route: 048
  8. MESALAMINE [Concomitant]
     Dosage: 1 G, TID

REACTIONS (10)
  - JOINT SWELLING [None]
  - MOBILITY DECREASED [None]
  - OSTEOARTHRITIS [None]
  - FEELING HOT [None]
  - DRUG INEFFECTIVE [None]
  - JOINT EFFUSION [None]
  - ARTHRITIS [None]
  - PAIN [None]
  - SYNOVITIS [None]
  - ARTHRALGIA [None]
